FAERS Safety Report 10252637 (Version 1)
Quarter: 2014Q2

REPORT INFORMATION
  Report Type: Spontaneous
  Country: US (occurrence: None)
  Receive Date: 20140619
  Receipt Date: 20140619
  Transmission Date: 20141212
  Serious: Yes (Hospitalization, Other)
  Sender: FDA-Public Use
  Company Number: DAV-AE-FUR-14-02

PATIENT
  Age: 78 Year
  Sex: Female

DRUGS (9)
  1. FUROSEMIDE [Suspect]
     Indication: HYPERTENSION
  2. GABAPENTIN [Concomitant]
  3. LISINOPRIL [Concomitant]
  4. SIMVASTATIN [Concomitant]
  5. METFORMIN [Concomitant]
  6. CITALOPRAM [Concomitant]
  7. FLUTICASONE PROPRIONATE INHALER [Concomitant]
  8. INHALED ALBUTEROL [Concomitant]
  9. METOLAZONE [Concomitant]

REACTIONS (5)
  - Renal failure acute [None]
  - Myoclonus [None]
  - Haemodialysis [None]
  - Blood potassium increased [None]
  - Blood sodium decreased [None]
